FAERS Safety Report 9928385 (Version 1)
Quarter: 2014Q1

REPORT INFORMATION
  Report Type: Spontaneous
  Country: US (occurrence: None)
  Receive Date: 20140226
  Receipt Date: 20140226
  Transmission Date: 20141002
  Serious: Yes (Hospitalization)
  Sender: FDA-Public Use
  Company Number: None

PATIENT
  Age: 71 Year
  Sex: Male
  Weight: 80.29 kg

DRUGS (13)
  1. AMPYRA [Suspect]
     Indication: OPTIC ISCHAEMIC NEUROPATHY
     Dosage: 1 TABLET BID PO
     Route: 048
     Dates: start: 20140113, end: 20140127
  2. VITAMIN D [Concomitant]
  3. OMEGA 3 [Concomitant]
  4. METFORMIN HCL [Suspect]
  5. ZOCOR [Concomitant]
  6. B COMPLEX [Concomitant]
  7. CALCIUM +D [Concomitant]
  8. ASPIRIN [Concomitant]
  9. METOPROLOL SUCCINATE [Concomitant]
  10. FLOMAX [Concomitant]
  11. VITAMIN C [Concomitant]
  12. MOMETASONE FUROATE 0.1% [Concomitant]
  13. CIALIS [Concomitant]

REACTIONS (3)
  - Fall [None]
  - Hip fracture [None]
  - Balance disorder [None]
